FAERS Safety Report 15363883 (Version 1)
Quarter: 2018Q3

REPORT INFORMATION
  Report Type: Spontaneous
  Country: US (occurrence: US)
  Receive Date: 20180831
  Receipt Date: 20180831
  Transmission Date: 20181010
  Serious: Yes (Hospitalization)
  Sender: FDA-Public Use
  Company Number: None

PATIENT

DRUGS (4)
  1. TRASTUZUMAB. [Suspect]
     Active Substance: TRASTUZUMAB
  2. CARBOPLATIN. [Suspect]
     Active Substance: CARBOPLATIN
  3. PACLITAXEL. [Suspect]
     Active Substance: PACLITAXEL
  4. PERTUZUMAB. [Suspect]
     Active Substance: PERTUZUMAB

REACTIONS (1)
  - Atrial fibrillation [None]

NARRATIVE: CASE EVENT DATE: 20180826
